FAERS Safety Report 18494366 (Version 1)
Quarter: 2020Q4

REPORT INFORMATION
  Report Type: Spontaneous
  Country: US (occurrence: US)
  Receive Date: 20201112
  Receipt Date: 20201112
  Transmission Date: 20210114
  Serious: No
  Sender: FDA-Public Use
  Company Number: US-APOTEX-2020AP020197

PATIENT
  Sex: Female

DRUGS (1)
  1. CLOPIDOGREL [Suspect]
     Active Substance: CLOPIDOGREL BISULFATE
     Indication: PRODUCT USED FOR UNKNOWN INDICATION
     Dosage: 1 DOSAGE FORM, Q.O.D.
     Route: 065

REACTIONS (10)
  - Headache [Unknown]
  - Dyspnoea [Unknown]
  - Heart rate increased [Unknown]
  - Hypersensitivity [Unknown]
  - Oral mucosal discolouration [Unknown]
  - Abdominal pain [Unknown]
  - Confusional state [Unknown]
  - Fatigue [Unknown]
  - Asthenia [Unknown]
  - Urine output decreased [Unknown]
